FAERS Safety Report 5088533-9 (Version None)
Quarter: 2006Q3

REPORT INFORMATION
  Report Type: 
  Country: None (occurrence: None)
  Receive Date: 20060727
  Receipt Date: 20060508
  Transmission Date: 20061208
  Serious: Yes (Other)
  Sender: FDA-Public Use
  Company Number: 2006043655

PATIENT
  Age: 58 Year
  Sex: Male
  Weight: 135 kg

DRUGS (7)
  1. LYRICA [Suspect]
     Indication: NEUROPATHY
     Dosage: 300 MG (100 MG, 3 IN 1 D), ORAL
     Route: 048
     Dates: start: 20060301
  2. PROTONIX [Concomitant]
  3. MULTIVITAMIN [Concomitant]
  4. GLUCOTROL [Concomitant]
  5. ACTOS [Concomitant]
  6. INSULIN (INSULIN) [Concomitant]
  7. ANTIHYPERTENSIVES (ANTIHYPERTENSIVES) [Concomitant]

REACTIONS (3)
  - BLOOD PRESSURE DECREASED [None]
  - FLUID RETENTION [None]
  - OVERDOSE [None]
